FAERS Safety Report 8070447-3 (Version None)
Quarter: 2012Q1

REPORT INFORMATION
  Report Type: 
  Country: None (occurrence: None)
  Receive Date: 20120125
  Receipt Date: 20120118
  Transmission Date: 20120608
  Serious: Yes (Hospitalization)
  Sender: FDA-Public Use
  Company Number: US-ROCHE-1032926

PATIENT
  Age: 52 Year
  Sex: Female
  Weight: 51 kg

DRUGS (2)
  1. AVASTIN [Suspect]
     Indication: BREAST CANCER METASTATIC
     Dosage: OVER 30-90 MIN ON DAYS 1 AND 15.  TOTAL DOSE ADMINISTERED 540 MG, CYCLE 6 WHEN EVENT OCCURRED, LAST
     Route: 042
     Dates: start: 20110720
  2. PACLITAXEL [Suspect]
     Indication: BREAST CANCER METASTATIC
     Dosage: OVER 1 HR ON DAYS 1, 8 AND 15. TOTAL DOSE ADMINISTERED 139 MG, COURSE 6 WHEN EVENT OCCURRED, LAST DO
     Route: 042
     Dates: start: 20110720

REACTIONS (1)
  - BIPOLAR DISORDER [None]
